FAERS Safety Report 5862856-5 (Version None)
Quarter: 2008Q3

REPORT INFORMATION
  Report Type: 
  Country: None (occurrence: None)
  Receive Date: 20080828
  Receipt Date: 20080821
  Transmission Date: 20090109
  Serious: Yes (Death)
  Sender: FDA-Public Use
  Company Number: A0725728A

PATIENT
  Age: 63 Year
  Sex: Male
  Weight: 103.6 kg

DRUGS (3)
  1. AVANDIA [Suspect]
     Dates: start: 20021203, end: 20060505
  2. GLUCOPHAGE [Concomitant]
     Dates: start: 20001109, end: 20060505
  3. AMARYL [Concomitant]
     Dates: start: 20010126, end: 20060505

REACTIONS (2)
  - CARDIAC ARREST [None]
  - HEART INJURY [None]
